FAERS Safety Report 9452492 (Version 1)
Quarter: 2013Q3

REPORT INFORMATION
  Report Type: Spontaneous
  Country: US (occurrence: None)
  Receive Date: 20130808
  Receipt Date: 20130808
  Transmission Date: 20140515
  Serious: Yes (Other)
  Sender: FDA-Public Use
  Company Number: None

PATIENT
  Age: 10 Year
  Sex: Male
  Weight: 31.75 kg

DRUGS (1)
  1. CONCERTA 36MG [Suspect]
     Indication: ATTENTION DEFICIT/HYPERACTIVITY DISORDER
     Dosage: 2 PILLS, ONCE DAILY, TAKEN BY MOUTH
     Route: 048
     Dates: start: 20130501, end: 20130807

REACTIONS (6)
  - Performance status decreased [None]
  - Educational problem [None]
  - Disturbance in attention [None]
  - Impulse-control disorder [None]
  - Daydreaming [None]
  - Abnormal behaviour [None]
